FAERS Safety Report 24802924 (Version 2)
Quarter: 2025Q1

REPORT INFORMATION
  Report Type: Spontaneous
  Country: US (occurrence: US)
  Receive Date: 20250103
  Receipt Date: 20250204
  Transmission Date: 20250409
  Serious: Yes (Other)
  Sender: GLAUKOS
  Company Number: US-GLK-002403

PATIENT
  Age: 38 Year
  Sex: Male

DRUGS (4)
  1. PHOTREXA [Suspect]
     Active Substance: RIBOFLAVIN 5^-PHOSPHATE SODIUM
     Indication: Product used for unknown indication
     Dates: start: 202301, end: 202301
  2. PHOTREXA [Suspect]
     Active Substance: RIBOFLAVIN 5^-PHOSPHATE SODIUM
     Dates: start: 20241119, end: 20241119
  3. PHOTREXA VISCOUS [Suspect]
     Active Substance: RIBOFLAVIN 5^-PHOSPHATE SODIUM
     Indication: Product used for unknown indication
     Route: 047
     Dates: start: 202301, end: 202301
  4. PHOTREXA VISCOUS [Suspect]
     Active Substance: RIBOFLAVIN 5^-PHOSPHATE SODIUM
     Indication: Product used for unknown indication
     Route: 047
     Dates: start: 20241119, end: 20241119

REACTIONS (8)
  - Corneal perforation [Unknown]
  - Corneal opacity [Unknown]
  - Corneal epithelium defect [Unknown]
  - Eye oedema [Unknown]
  - Eye pain [Unknown]
  - Corneal oedema [Unknown]
  - Keratoplasty [Unknown]
  - Visual impairment [Unknown]

NARRATIVE: CASE EVENT DATE: 20241101
